FAERS Safety Report 4575898-7 (Version None)
Quarter: 2005Q1

REPORT INFORMATION
  Report Type: 
  Country: None (occurrence: None)
  Receive Date: 20050201
  Receipt Date: 20050201
  Transmission Date: 20050727
  Serious: No
  Sender: FDA-Public Use
  Company Number: None

PATIENT
  Age: 60 Year
  Sex: Female

DRUGS (8)
  1. TRIAMTERENE AND HYDROCHLOROTHIAZIDE [Suspect]
     Indication: HYPERTENSION
     Dosage: 1 TAB DAILY
     Dates: start: 20041001
  2. AZMACORT [Concomitant]
  3. NASACORT [Concomitant]
  4. ONE A DAY MULTIVITAMIN [Concomitant]
  5. VITAMIN C [Concomitant]
  6. OSCAL 500 [Concomitant]
  7. OCUVITE W/LUTEIN [Concomitant]
  8. VITAMIN E [Concomitant]

REACTIONS (2)
  - BLOOD PRESSURE INCREASED [None]
  - PHARMACEUTICAL PRODUCT COMPLAINT [None]
